FAERS Safety Report 7783851-5 (Version None)
Quarter: 2011Q3

REPORT INFORMATION
  Report Type: 
  Country: None (occurrence: None)
  Receive Date: 20110928
  Receipt Date: 20110927
  Transmission Date: 20111222
  Serious: Yes (Hospitalization)
  Sender: FDA-Public Use
  Company Number: US-GLAXOSMITHKLINE-A0788273A

PATIENT
  Age: 57 Year
  Sex: Female
  Weight: 139 kg

DRUGS (13)
  1. ZESTRIL [Concomitant]
  2. PREVACID [Concomitant]
  3. MAXZIDE [Concomitant]
  4. LIPITOR [Concomitant]
  5. ZANTAC [Concomitant]
  6. AVANDIA [Suspect]
     Indication: TYPE 2 DIABETES MELLITUS
     Dosage: 4MG PER DAY
     Route: 048
     Dates: end: 20080720
  7. VIOXX [Concomitant]
  8. FLEXERIL [Concomitant]
  9. ASPIRIN [Concomitant]
  10. XANAX [Concomitant]
  11. NORVASC [Concomitant]
  12. CARDURA [Concomitant]
  13. COZAAR [Concomitant]

REACTIONS (4)
  - ACUTE MYOCARDIAL INFARCTION [None]
  - ATRIAL FIBRILLATION [None]
  - CORONARY ARTERY DISEASE [None]
  - CARDIAC FAILURE CONGESTIVE [None]
